FAERS Safety Report 12603882 (Version 1)
Quarter: 2016Q3

REPORT INFORMATION
  Report Type: Spontaneous
  Country: JP (occurrence: JP)
  Receive Date: 20160728
  Receipt Date: 20160728
  Transmission Date: 20161109
  Serious: Yes (Disabling)
  Sender: FDA-Public Use
  Company Number: JP-PFIZER INC-2016359457

PATIENT
  Age: 73 Year
  Sex: Male

DRUGS (6)
  1. LYRICA [Suspect]
     Active Substance: PREGABALIN
     Dosage: 150 MG, DAILY
     Route: 048
     Dates: start: 20160716, end: 20160720
  2. REBAMIPIDE [Concomitant]
     Active Substance: REBAMIPIDE
  3. LYRICA [Suspect]
     Active Substance: PREGABALIN
     Dosage: 25 MG, 4X/DAY
     Dates: start: 20160711
  4. LYRICA [Suspect]
     Active Substance: PREGABALIN
     Indication: PAIN
     Dosage: 25 MG, 2X/DAY
     Route: 048
     Dates: start: 20160616
  5. LYRICA [Suspect]
     Active Substance: PREGABALIN
     Dosage: 25 MG, 4X/DAY
     Dates: start: 20160722
  6. CELECOX [Concomitant]
     Active Substance: CELECOXIB

REACTIONS (1)
  - Quadriplegia [Recovered/Resolved]

NARRATIVE: CASE EVENT DATE: 20160716
